FAERS Safety Report 26030804 (Version 2)
Quarter: 2025Q4

REPORT INFORMATION
  Report Type: Spontaneous
  Country: US (occurrence: None)
  Receive Date: 20251112
  Receipt Date: 20251120
  Transmission Date: 20260119
  Serious: No
  Sender: UMEDICA LABS
  Company Number: US-Umedica-000711

PATIENT

DRUGS (1)
  1. ROSUVASTATIN CALCIUM [Suspect]
     Active Substance: ROSUVASTATIN CALCIUM
     Indication: Product used for unknown indication

REACTIONS (4)
  - Dysgeusia [Unknown]
  - Pain [Unknown]
  - Headache [Unknown]
  - Fatigue [Unknown]

NARRATIVE: CASE EVENT DATE: 20250101
